FAERS Safety Report 12194051 (Version 1)
Quarter: 2016Q1

REPORT INFORMATION
  Report Type: Spontaneous
  Country: US (occurrence: None)
  Receive Date: 20160318
  Receipt Date: 20160318
  Transmission Date: 20160526
  Serious: Yes (Life-Threatening, Other)
  Sender: FDA-Public Use
  Company Number: None

PATIENT
  Age: 26 Year
  Sex: Male
  Weight: 68.04 kg

DRUGS (1)
  1. SUBOXONE [Suspect]
     Active Substance: BUPRENORPHINE HYDROCHLORIDE\NALOXONE HYDROCHLORIDE
     Indication: DRUG DEPENDENCE
     Dosage: 1 PILL ONCE DAILY TAKEN UNDER THE TONGUE
     Route: 060

REACTIONS (6)
  - Aggression [None]
  - Physical assault [None]
  - Alcohol interaction [None]
  - Legal problem [None]
  - Incoherent [None]
  - Alcohol use [None]

NARRATIVE: CASE EVENT DATE: 20160316
